FAERS Safety Report 15387393 (Version 1)
Quarter: 2018Q3

REPORT INFORMATION
  Report Type: Report from Study
  Country: CO (occurrence: CO)
  Receive Date: 20180914
  Receipt Date: 20180914
  Transmission Date: 20181010
  Serious: Yes (Death, Other)
  Sender: FDA-Public Use
  Company Number: CO-UCBSA-2018041052

PATIENT
  Age: 19 Year
  Sex: Female
  Weight: 67 kg

DRUGS (6)
  1. PREDNISOLONE. [Concomitant]
     Active Substance: PREDNISOLONE
     Indication: RHEUMATOID ARTHRITIS
  2. FOLIC ACID. [Concomitant]
     Active Substance: FOLIC ACID
     Indication: PREGNANCY
  3. CALCIUM [Concomitant]
     Active Substance: CALCIUM
     Indication: PREGNANCY
  4. CERTOLIZUMAB PEGOL [Suspect]
     Active Substance: CERTOLIZUMAB PEGOL
     Indication: RHEUMATOID ARTHRITIS
     Dosage: 400 MG, MONTHLY (QM)
     Route: 058
     Dates: start: 20180314, end: 20180713
  5. LEFLUNOMIDE. [Concomitant]
     Active Substance: LEFLUNOMIDE
     Indication: RHEUMATOID ARTHRITIS
  6. FERROUS SULFATE. [Concomitant]
     Active Substance: FERROUS SULFATE
     Indication: PREGNANCY

REACTIONS (5)
  - Hypovolaemia [Fatal]
  - Pregnancy [Unknown]
  - Vaginal haemorrhage [Fatal]
  - Cardio-respiratory arrest [Fatal]
  - Abortion induced [Fatal]

NARRATIVE: CASE EVENT DATE: 20180813
